FAERS Safety Report 16760637 (Version 14)
Quarter: 2024Q2

REPORT INFORMATION
  Report Type: Spontaneous
  Country: US (occurrence: US)
  Receive Date: 20190830
  Receipt Date: 20240422
  Transmission Date: 20240716
  Serious: Yes (Hospitalization, Other)
  Sender: FDA-Public Use
  Company Number: US-PFIZER INC-2019369930

PATIENT
  Sex: Female
  Weight: 65.77 kg

DRUGS (16)
  1. CADUET [Suspect]
     Active Substance: AMLODIPINE BESYLATE\ATORVASTATIN CALCIUM
     Indication: Hypertension
     Dosage: UNK, QD 1X/DAY
     Route: 065
  2. CADUET [Suspect]
     Active Substance: AMLODIPINE BESYLATE\ATORVASTATIN CALCIUM
     Indication: Blood cholesterol increased
     Dosage: UNK, QD, DAILY (5MG-10MG, TABLET, ONCE EVERY NIGHT AFTER SUPPER)
     Route: 048
  3. CADUET [Suspect]
     Active Substance: AMLODIPINE BESYLATE\ATORVASTATIN CALCIUM
     Dosage: UNK, QD, 1X/DAY (5MG-10MG IN HER MOUTH WITH WATER EVERY NIGHT ONCE A DAY)
     Route: 048
  4. CADUET [Suspect]
     Active Substance: AMLODIPINE BESYLATE\ATORVASTATIN CALCIUM
     Dosage: 1.5 MILLIGRAM, QD (TAKE 1.5 TABLET(S) EVERY DAY BY ORAL ROUTE FOR 90 DAYS )
     Route: 048
  5. CELEBREX [Suspect]
     Active Substance: CELECOXIB
     Indication: Arthritis
     Dosage: 50 MILLIGRAM, BID, 2X/DAY
     Route: 065
     Dates: start: 2015
  6. SKELAXIN [Suspect]
     Active Substance: METAXALONE
     Indication: Arthritis
     Dosage: 800 MILLIGRAM, BID, (2X/DAY)
     Route: 065
     Dates: start: 2016
  7. SKELAXIN [Suspect]
     Active Substance: METAXALONE
     Dosage: 800 MILLIGRAM, BID, (2X/DAY)
     Route: 065
     Dates: start: 2016
  8. ACYCLOVIR [Concomitant]
     Active Substance: ACYCLOVIR
     Indication: Product used for unknown indication
     Dosage: 800 MILLIGRAM
     Route: 065
     Dates: start: 2000
  9. ALPRAZOLAM [Concomitant]
     Active Substance: ALPRAZOLAM
     Indication: Product used for unknown indication
     Dosage: 0.5 MILLIGRAM
     Route: 065
     Dates: start: 2000
  10. COREG CR [Concomitant]
     Active Substance: CARVEDILOL PHOSPHATE
     Indication: Product used for unknown indication
     Dosage: 10 MILLIGRAM
     Route: 065
     Dates: start: 2015
  11. ESTRACE [Concomitant]
     Active Substance: ESTRADIOL
     Indication: Product used for unknown indication
     Dosage: UNK
     Route: 067
  12. HYDROCHLOROTHIAZIDE\IRBESARTAN [Concomitant]
     Active Substance: HYDROCHLOROTHIAZIDE\IRBESARTAN
     Indication: Product used for unknown indication
     Dosage: UNK
     Route: 065
     Dates: start: 2015
  13. OS-CAL + D [Concomitant]
     Indication: Product used for unknown indication
     Dosage: UNK
     Route: 065
     Dates: start: 1995
  14. SYNTHROID [Concomitant]
     Active Substance: LEVOTHYROXINE SODIUM
     Indication: Product used for unknown indication
     Dosage: 75 MICROGRAM
     Route: 065
     Dates: start: 1998
  15. TRAMADOL [Concomitant]
     Active Substance: TRAMADOL\TRAMADOL HYDROCHLORIDE
     Indication: Product used for unknown indication
     Dosage: 50 MILLIGRAM
     Route: 065
     Dates: start: 1998
  16. VITAMIN D3 [Concomitant]
     Active Substance: CHOLECALCIFEROL
     Indication: Product used for unknown indication
     Dosage: 25 MICROGRAM, (1000 IU)
     Route: 065

REACTIONS (3)
  - Rotator cuff syndrome [Recovering/Resolving]
  - Therapeutic product effect incomplete [Unknown]
  - Stress [Unknown]

NARRATIVE: CASE EVENT DATE: 20200101
